FAERS Safety Report 6169749-7 (Version None)
Quarter: 2009Q2

REPORT INFORMATION
  Report Type: 
  Country: None (occurrence: None)
  Receive Date: 20090428
  Receipt Date: 20090413
  Transmission Date: 20091009
  Serious: Yes (Other)
  Sender: FDA-Public Use
  Company Number: US-ROCHE-627093

PATIENT
  Age: 49 Year
  Sex: Female

DRUGS (4)
  1. CAPECITABINE [Suspect]
     Dosage: TAKEN FOR YEARS
     Route: 065
  2. CITALOPRAM [Concomitant]
     Dosage: TAKEN FOR YEARS
  3. ZOLEDRONIC ACID [Concomitant]
     Dosage: TAKEN FOR YEARS
  4. IBUPROFEN [Concomitant]
     Dosage: TAKEN FOR YEARS

REACTIONS (1)
  - CUTANEOUS LUPUS ERYTHEMATOSUS [None]
